FAERS Safety Report 21687473 (Version 2)
Quarter: 2023Q2

REPORT INFORMATION
  Report Type: Report from Study
  Country: US (occurrence: US)
  Receive Date: 20221206
  Receipt Date: 20230419
  Transmission Date: 20230722
  Serious: No
  Sender: FDA-Public Use
  Company Number: US-ABBVIE-4212482

PATIENT
  Age: 68 Year
  Sex: Female

DRUGS (3)
  1. HUMIRA [Suspect]
     Active Substance: ADALIMUMAB
     Indication: Hidradenitis
     Route: 058
  2. HUMIRA [Suspect]
     Active Substance: ADALIMUMAB
     Route: 058
  3. HUMIRA [Suspect]
     Active Substance: ADALIMUMAB

REACTIONS (6)
  - Hidradenitis [Unknown]
  - Ulcer [Unknown]
  - Blister [Recovered/Resolved]
  - Nausea [Recovering/Resolving]
  - Swelling [Unknown]
  - Blister [Unknown]

NARRATIVE: CASE EVENT DATE: 20230323
